FAERS Safety Report 18006392 (Version 1)
Quarter: 2020Q3

REPORT INFORMATION
  Report Type: Spontaneous
  Country: US (occurrence: US)
  Receive Date: 20200710
  Receipt Date: 20200710
  Transmission Date: 20201103
  Serious: Yes (Hospitalization)
  Sender: FDA-Public Use
  Company Number: None

PATIENT
  Age: 56 Year
  Sex: Female
  Weight: 68 kg

DRUGS (3)
  1. BORTEZOMIB. [Suspect]
     Active Substance: BORTEZOMIB
     Dates: end: 20171226
  2. LENALIDOMIDE (CC?5013) [Concomitant]
     Active Substance: LENALIDOMIDE
     Dates: end: 20180101
  3. DEXAMETHASONE 40MG [Suspect]
     Active Substance: DEXAMETHASONE
     Dates: end: 20180102

REACTIONS (1)
  - Neutrophil count decreased [None]

NARRATIVE: CASE EVENT DATE: 20180102
